FAERS Safety Report 9251048 (Version 2)
Quarter: 2014Q1

REPORT INFORMATION
  Report Type: Spontaneous
  Country: US (occurrence: None)
  Receive Date: 20130305
  Receipt Date: 20140306
  Transmission Date: 20141002
  Serious: Yes (Other)
  Sender: FDA-Public Use
  Company Number: 163-21880-12100534

PATIENT
  Age: 65 Year
  Sex: Female

DRUGS (1)
  1. REVLIMID (LENALIDOMIDE) (10 MILLIGRAM, CAPSULES) [Suspect]
     Indication: MYELODYSPLASTIC SYNDROME
     Dosage: 10 MG, 28 IN 28 D, PO
     Route: 048
     Dates: start: 201208

REACTIONS (6)
  - Headache [None]
  - Chest discomfort [None]
  - Rash pruritic [None]
  - Pyrexia [None]
  - Pruritus [None]
  - Skin discolouration [None]
